FAERS Safety Report 25876790 (Version 1)
Quarter: 2025Q4

REPORT INFORMATION
  Report Type: Report from Study
  Country: AR (occurrence: AR)
  Receive Date: 20251003
  Receipt Date: 20251003
  Transmission Date: 20260117
  Serious: Yes (Hospitalization)
  Sender: JOHNSON AND JOHNSON
  Company Number: AR-JNJFOC-20250946811

PATIENT
  Age: 81 Year
  Sex: Female
  Weight: 83 kg

DRUGS (1)
  1. DARZALEX [Suspect]
     Active Substance: DARATUMUMAB
     Indication: Plasma cell myeloma
     Route: 042
     Dates: start: 20230403

REACTIONS (4)
  - Hip fracture [Unknown]
  - Fall [Unknown]
  - Urinary tract infection bacterial [Unknown]
  - Bacteraemia [Unknown]

NARRATIVE: CASE EVENT DATE: 20250904
